FAERS Safety Report 7323552-0 (Version None)
Quarter: 2011Q1

REPORT INFORMATION
  Report Type: 
  Country: None (occurrence: None)
  Receive Date: 20110301
  Receipt Date: 20110217
  Transmission Date: 20110831
  Serious: Yes (Other)
  Sender: FDA-Public Use
  Company Number: GB-ROCHE-760810

PATIENT

DRUGS (1)
  1. XENICAL [Suspect]
     Route: 065
     Dates: end: 20091001

REACTIONS (3)
  - VITAMIN D DECREASED [None]
  - HYPOCALCAEMIA [None]
  - HYPERPARATHYROIDISM SECONDARY [None]
